FAERS Safety Report 18312356 (Version 1)
Quarter: 2020Q3

REPORT INFORMATION
  Report Type: Spontaneous
  Country: CA (occurrence: CA)
  Receive Date: 20200925
  Receipt Date: 20200925
  Transmission Date: 20201103
  Serious: Yes (Other)
  Sender: FDA-Public Use
  Company Number: CA-GLAXOSMITHKLINE-CA2020AMR188556

PATIENT
  Sex: Female

DRUGS (1)
  1. BENLYSTA [Suspect]
     Active Substance: BELIMUMAB
     Indication: SYSTEMIC LUPUS ERYTHEMATOSUS
     Dosage: UNK
     Route: 042
     Dates: start: 2012

REACTIONS (12)
  - Arrhythmia [Unknown]
  - Dyspnoea exertional [Unknown]
  - Sleep disorder [Unknown]
  - Hypersomnia [Unknown]
  - Fatigue [Unknown]
  - Dizziness [Unknown]
  - Asphyxia [Unknown]
  - Condition aggravated [Unknown]
  - Malaise [Unknown]
  - Hypertension [Unknown]
  - Gait disturbance [Unknown]
  - Crying [Unknown]
